FAERS Safety Report 4818511-3 (Version None)
Quarter: 2005Q4

REPORT INFORMATION
  Report Type: 
  Country: None (occurrence: None)
  Receive Date: 20051031
  Receipt Date: 20051017
  Transmission Date: 20060501
  Serious: Yes (Hospitalization, Other)
  Sender: FDA-Public Use
  Company Number: 2005137968

PATIENT
  Age: 68 Year
  Sex: Male
  Weight: 149.2334 kg

DRUGS (4)
  1. LIPITOR [Suspect]
     Indication: BLOOD CHOLESTEROL
     Dosage: 10 MG (10 MG, 1 IN 1 D), ORAL
     Route: 048
     Dates: start: 20050901, end: 20050101
  2. OTHER DERMATOLOGICAL PREPARATIONS (OTHER DERMATOLOGICAL PREPARATIONS) [Suspect]
     Indication: RASH
     Dosage: TOPICAL
     Route: 061
     Dates: start: 20050101
  3. MORPHINE [Suspect]
     Indication: PAIN
     Dates: start: 20051001
  4. ATENOLOL [Concomitant]

REACTIONS (22)
  - BLISTER [None]
  - CHILLS [None]
  - FEAR [None]
  - FEELING ABNORMAL [None]
  - FEELING COLD [None]
  - HYPERSENSITIVITY [None]
  - IMPAIRED HEALING [None]
  - OEDEMA [None]
  - OEDEMA PERIPHERAL [None]
  - PAIN IN EXTREMITY [None]
  - PURULENCE [None]
  - PYREXIA [None]
  - RASH [None]
  - RASH GENERALISED [None]
  - RASH PRURITIC [None]
  - SCAB [None]
  - SKIN EXFOLIATION [None]
  - SKIN ODOUR ABNORMAL [None]
  - TREMOR [None]
  - URTICARIA [None]
  - VASCULITIS [None]
  - WOUND SECRETION [None]
